FAERS Safety Report 11789660 (Version 1)
Quarter: 2015Q4

REPORT INFORMATION
  Report Type: Report from Study
  Country: IE (occurrence: IE)
  Receive Date: 20151201
  Receipt Date: 20151201
  Transmission Date: 20160305
  Serious: Yes (Other)
  Sender: FDA-Public Use
  Company Number: IE-GLAXOSMITHKLINE-IE2015GSK170010

PATIENT
  Age: 8 Month

DRUGS (6)
  1. HEPATITIS B VACCINE [Suspect]
     Active Substance: HEPATITIS B VIRUS VACCINE
     Indication: PROPHYLAXIS
  2. HEPATITIS B VACCINE [Suspect]
     Active Substance: HEPATITIS B VIRUS VACCINE
     Indication: PROPHYLAXIS
  3. HEPATITIS B VACCINE [Suspect]
     Active Substance: HEPATITIS B VIRUS VACCINE
     Indication: PROPHYLAXIS
  4. HEPATECT [Suspect]
     Active Substance: HUMAN HEPATITIS B VIRUS IMMUNE GLOBULIN
     Indication: PROPHYLAXIS
  5. LAMIVUDINE. [Suspect]
     Active Substance: LAMIVUDINE
     Indication: HEPATITIS B
     Route: 064
  6. HEPATITIS B VACCINE [Suspect]
     Active Substance: HEPATITIS B VIRUS VACCINE
     Indication: PROPHYLAXIS

REACTIONS (4)
  - Vertical infection transmission [Unknown]
  - Vaccination failure [Unknown]
  - Maternal drugs affecting foetus [None]
  - Hepatitis B [Unknown]
